FAERS Safety Report 9392159 (Version 1)
Quarter: 2013Q3

REPORT INFORMATION
  Report Type: Spontaneous
  Country: CH (occurrence: CH)
  Receive Date: 20130710
  Receipt Date: 20130710
  Transmission Date: 20140515
  Serious: Yes (Hospitalization)
  Sender: FDA-Public Use
  Company Number: CH-009507513-1307CHE002704

PATIENT
  Age: 50 Year
  Sex: Female
  Weight: 62 kg

DRUGS (3)
  1. REMERON [Suspect]
     Dosage: 7.5 MG, ONCE DAILY
     Route: 048
  2. SORTIS [Suspect]
     Dosage: 20 MG DAILY
     Route: 048
     Dates: start: 2012
  3. SOMNIUM (DIPHENHYDRAMINE HYDROCHLORIDE (+) LORAZEPAM) [Suspect]
     Dosage: UNK
     Route: 048
     Dates: start: 20130503

REACTIONS (5)
  - Confusional state [Unknown]
  - Disorientation [Unknown]
  - Anterograde amnesia [Unknown]
  - Disturbance in attention [Unknown]
  - Balance disorder [Unknown]
